FAERS Safety Report 6161756-3 (Version None)
Quarter: 2009Q2

REPORT INFORMATION
  Report Type: 
  Country: None (occurrence: None)
  Receive Date: 20090421
  Receipt Date: 20090407
  Transmission Date: 20091009
  Serious: Yes (Other)
  Sender: FDA-Public Use
  Company Number: US-ROCHE-626587

PATIENT
  Age: 63 Year
  Sex: Female

DRUGS (6)
  1. BONIVA [Suspect]
     Indication: OSTEOPENIA
     Route: 065
  2. REMERON [Concomitant]
  3. SYNTHROID [Concomitant]
  4. CORTIZONE [Concomitant]
     Dosage: DRUG: CORTIZONE ACETATE
  5. PLAVIX [Concomitant]
  6. CLONAZEPAM [Concomitant]

REACTIONS (7)
  - ABDOMINAL PAIN [None]
  - DIARRHOEA [None]
  - DIZZINESS [None]
  - FATIGUE [None]
  - HYPOTHYROIDISM [None]
  - PAIN IN EXTREMITY [None]
  - SYNCOPE [None]
